FAERS Safety Report 23799039 (Version 1)
Quarter: 2024Q2

REPORT INFORMATION
  Report Type: Report from Study
  Country: EG (occurrence: EG)
  Receive Date: 20240430
  Receipt Date: 20240430
  Transmission Date: 20240716
  Serious: Yes (Other)
  Sender: FDA-Public Use
  Company Number: EG-ABBVIE-5734490

PATIENT
  Age: 41 Year
  Sex: Female

DRUGS (3)
  1. RINVOQ [Suspect]
     Active Substance: UPADACITINIB
     Indication: Psoriatic arthropathy
     Dosage: 1 TABLET
     Route: 048
     Dates: start: 202401, end: 202403
  2. CRESTOR [Concomitant]
     Active Substance: ROSUVASTATIN CALCIUM
     Indication: Blood cholesterol
     Dosage: FORM STRENGTH: 5 MILLIGRAM
     Route: 065
     Dates: start: 202403
  3. CRESTOR [Concomitant]
     Active Substance: ROSUVASTATIN CALCIUM
     Indication: Blood cholesterol
     Dosage: FORM STRENGTH: 10 MG?START DATE TEXT: BEFORE RINVOQ WITH A YEAR?STOP DATE TEXT: AFTER A YEAR

REACTIONS (11)
  - Syncope [Unknown]
  - Blood cholesterol increased [Unknown]
  - Drug ineffective [Unknown]
  - Arthritis [Recovering/Resolving]
  - Pain [Recovering/Resolving]
  - Nausea [Recovered/Resolved]
  - Hypophagia [Unknown]
  - Headache [Recovered/Resolved]
  - Psoriasis [Recovering/Resolving]
  - Fluid intake reduced [Unknown]
  - Loss of personal independence in daily activities [Unknown]

NARRATIVE: CASE EVENT DATE: 20240101
